FAERS Safety Report 9999520 (Version 1)
Quarter: 2014Q1

REPORT INFORMATION
  Report Type: Spontaneous
  Country: US (occurrence: US)
  Receive Date: 20140312
  Receipt Date: 20140312
  Transmission Date: 20141002
  Serious: Yes (Other)
  Sender: FDA-Public Use
  Company Number: US-TEVA-415755USA

PATIENT
  Age: 74 Year
  Sex: Male

DRUGS (2)
  1. AMOXICILLIN [Suspect]
  2. ROLAPITANT [Suspect]

REACTIONS (1)
  - Diarrhoea [Unknown]
